FAERS Safety Report 10537142 (Version 2)
Quarter: 2014Q4

REPORT INFORMATION
  Report Type: Spontaneous
  Country: JP (occurrence: JP)
  Receive Date: 20141022
  Receipt Date: 20141125
  Transmission Date: 20150529
  Serious: Yes (Hospitalization, Other)
  Sender: FDA-Public Use
  Company Number: JP-GILEAD-2014-0119422

PATIENT
  Age: 65 Year
  Sex: Male

DRUGS (2)
  1. HEPSERA [Suspect]
     Active Substance: ADEFOVIR DIPIVOXIL
     Indication: CHRONIC HEPATITIS B
     Dosage: UNK MG, UNK
     Route: 048
     Dates: start: 200509, end: 20140116
  2. ZEFFIX [Concomitant]
     Active Substance: LAMIVUDINE
     Indication: CHRONIC HEPATITIS B
     Dosage: UNK
     Route: 048

REACTIONS (11)
  - Compression fracture [Unknown]
  - Acquired aminoaciduria [Unknown]
  - Hypophosphataemia [Recovering/Resolving]
  - Blood creatinine increased [Recovering/Resolving]
  - Depressed level of consciousness [Recovering/Resolving]
  - Fanconi syndrome acquired [Recovered/Resolved]
  - Gait disturbance [Recovering/Resolving]
  - Back pain [Unknown]
  - Bone density decreased [Unknown]
  - Blood alkaline phosphatase increased [Unknown]
  - Metabolic acidosis [Recovering/Resolving]

NARRATIVE: CASE EVENT DATE: 201312
